FAERS Safety Report 9614575 (Version 1)
Quarter: 2013Q4

REPORT INFORMATION
  Report Type: Spontaneous
  Country: US (occurrence: None)
  Receive Date: 20131009
  Receipt Date: 20131009
  Transmission Date: 20140711
  Serious: Yes (Hospitalization, Other)
  Sender: FDA-Public Use
  Company Number: None

PATIENT
  Age: 74 Year
  Sex: Male
  Weight: 90.7 kg

DRUGS (3)
  1. LIDOCAINE /EPINEPHRINE [Suspect]
     Indication: SURGERY
     Dosage: 22CC  SQ  X1
     Route: 058
     Dates: start: 20130925
  2. FENTANYL [Concomitant]
  3. LABETOLOL 200MG TEVA [Concomitant]

REACTIONS (7)
  - Convulsion [None]
  - Tachycardia [None]
  - Product quality issue [None]
  - Toxicity to various agents [None]
  - Tremor [None]
  - Tachypnoea [None]
  - Hyperventilation [None]
